FAERS Safety Report 8603366 (Version 5)
Quarter: 2013Q2

REPORT INFORMATION
  Report Type: Spontaneous
  Country: US (occurrence: US)
  Receive Date: 20120607
  Receipt Date: 20130520
  Transmission Date: 20140414
  Serious: Yes (Other)
  Sender: FDA-Public Use
  Company Number: US-009507513-1203USA01331

PATIENT
  Sex: Female

DRUGS (8)
  1. FOSAMAX [Suspect]
     Indication: OSTEOPOROSIS
     Dosage: 70 MG, QW
     Route: 048
     Dates: start: 20030625, end: 200910
  2. FOSAMAX [Suspect]
     Indication: OSTEOPOROSIS
     Dosage: 70 MG, UNK
     Route: 048
     Dates: start: 20080226
  3. ALENDRONATE SODIUM [Suspect]
     Dosage: 70 MG, UNK
     Dates: start: 20080818
  4. LIPITOR [Concomitant]
     Indication: HYPERLIPIDAEMIA
  5. LIPITOR [Concomitant]
     Indication: BLOOD CHOLESTEROL INCREASED
  6. HYDROCHLOROTHIAZIDE [Concomitant]
     Indication: HYPERTENSION
  7. LOTENSIN (CAPTOPRIL) [Concomitant]
     Indication: HYPERTENSION
  8. CALCIUM (UNSPECIFIED) [Concomitant]
     Indication: OSTEOPOROSIS

REACTIONS (50)
  - Renal failure [Unknown]
  - Deafness [Unknown]
  - Osteonecrosis of jaw [Recovered/Resolved]
  - Osteonecrosis of jaw [Recovered/Resolved]
  - Oral infection [Recovered/Resolved]
  - Periodontal disease [Unknown]
  - Tooth disorder [Unknown]
  - Tooth disorder [Unknown]
  - Tooth disorder [Unknown]
  - Tooth abscess [Unknown]
  - Tooth abscess [Unknown]
  - Dental fistula [Recovered/Resolved]
  - Gingivitis [Unknown]
  - Normochromic normocytic anaemia [Recovering/Resolving]
  - Cataract [Unknown]
  - Appendix disorder [Unknown]
  - Fracture [Unknown]
  - Ecchymosis [Unknown]
  - VIIth nerve paralysis [Unknown]
  - Herpes zoster [Unknown]
  - Hypokalaemia [Unknown]
  - Rectal haemorrhage [Unknown]
  - Gout [Recovering/Resolving]
  - Weight decreased [Unknown]
  - Weight decreased [Unknown]
  - Cellulitis [Unknown]
  - Blister [Unknown]
  - Mass [Unknown]
  - Device breakage [Unknown]
  - Eczema [Unknown]
  - Arthritis [Not Recovered/Not Resolved]
  - Kyphosis [Unknown]
  - Eye oedema [Unknown]
  - Eye pruritus [Unknown]
  - Tooth disorder [Unknown]
  - Osteopenia [Unknown]
  - Wound dehiscence [Unknown]
  - Breast mass [Unknown]
  - Fatigue [Recovering/Resolving]
  - Gout [Recovering/Resolving]
  - Osteoarthritis [Not Recovered/Not Resolved]
  - Arthropod bite [Unknown]
  - Haemorrhoids [Unknown]
  - Asthenia [Unknown]
  - Constipation [Unknown]
  - Diarrhoea [Unknown]
  - Musculoskeletal pain [Unknown]
  - Angioedema [Unknown]
  - Arthralgia [Unknown]
  - Urticaria [Unknown]
